FAERS Safety Report 24394680 (Version 2)
Quarter: 2024Q4

REPORT INFORMATION
  Report Type: Spontaneous
  Country: US (occurrence: US)
  Receive Date: 20241004
  Receipt Date: 20241123
  Transmission Date: 20250115
  Serious: No
  Sender: Kenvue
  Company Number: US-JNJFOC-20240963784

PATIENT

DRUGS (1)
  1. WOMENS ROGAINE [Suspect]
     Active Substance: MINOXIDIL
     Indication: Alopecia
     Dosage: 1 DROPPER - 1 ML TWICE A DAY
     Route: 061
     Dates: start: 2018

REACTIONS (4)
  - Therapeutic product effect decreased [Unknown]
  - Product tampering [Unknown]
  - Product container issue [Unknown]
  - Suspected counterfeit product [Unknown]
